FAERS Safety Report 4369902-9 (Version None)
Quarter: 2004Q2

REPORT INFORMATION
  Report Type: 
  Country: None (occurrence: None)
  Receive Date: 20040525
  Receipt Date: 20040512
  Transmission Date: 20050107
  Serious: Yes (Death)
  Sender: FDA-Public Use
  Company Number: SE-JNJFOC-20040502673

PATIENT
  Age: 79 Year
  Sex: Male

DRUGS (2)
  1. INFLIXIMAB (INFLIXIMAB, RECOMBINANT) LYOPHILIZED POWDER [Suspect]
     Indication: CROHN'S DISEASE
     Dosage: RECEIVED ONE INFLIXIMAB INFUSION
     Route: 042
  2. GLUCOCORTICOSTEROIDS (GLUCOCORTICOSTEROIDS) [Concomitant]

REACTIONS (1)
  - B-CELL LYMPHOMA [None]
